FAERS Safety Report 5397324-0 (Version None)
Quarter: 2007Q3

REPORT INFORMATION
  Report Type: 
  Country: None (occurrence: None)
  Receive Date: 20070723
  Receipt Date: 20070712
  Transmission Date: 20080115
  Serious: Yes (Other)
  Sender: FDA-Public Use
  Company Number: 2007-02014

PATIENT
  Sex: Male

DRUGS (2)
  1. VELCADE [Suspect]
     Indication: MULTIPLE MYELOMA
  2. DEXAMETHASONE 0.5MG TAB [Concomitant]

REACTIONS (3)
  - INSOMNIA [None]
  - MAJOR DEPRESSION [None]
  - SUICIDAL IDEATION [None]
